FAERS Safety Report 5034943-5 (Version None)
Quarter: 2006Q2

REPORT INFORMATION
  Report Type: 
  Country: None (occurrence: None)
  Receive Date: 20060622
  Receipt Date: 20060622
  Transmission Date: 20061013
  Serious: Yes (Hospitalization)
  Sender: FDA-Public Use
  Company Number: None

PATIENT
  Age: 49 Year
  Sex: Female
  Weight: 63.9572 kg

DRUGS (3)
  1. FENTANYL [Suspect]
     Indication: ENDOSCOPY
     Dosage: 130 MG INCREMENTALLY IV
     Route: 042
     Dates: start: 20060418, end: 20060418
  2. FENTANYL [Suspect]
     Indication: SEDATION
     Dosage: 130 MG INCREMENTALLY IV
     Route: 042
     Dates: start: 20060418, end: 20060418
  3. VERSED [Suspect]
     Indication: SEDATION
     Dosage: 6 MG INCREMENTALLY IV
     Route: 042
     Dates: start: 20060418, end: 20060418

REACTIONS (2)
  - NAUSEA [None]
  - VOMITING [None]
